FAERS Safety Report 15834691 (Version 8)
Quarter: 2020Q2

REPORT INFORMATION
  Report Type: Spontaneous
  Country: US (occurrence: US)
  Receive Date: 20190116
  Receipt Date: 20200511
  Transmission Date: 20200713
  Serious: No
  Sender: FDA-Public Use
  Company Number: US-PFIZER INC-2019017377

PATIENT
  Age: 90 Year
  Sex: Female
  Weight: 50 kg

DRUGS (3)
  1. BOSULIF [Suspect]
     Active Substance: BOSUTINIB MONOHYDRATE
     Dosage: 1 DF, ALTERNATE DAY
  2. BOSULIF [Suspect]
     Active Substance: BOSUTINIB MONOHYDRATE
     Indication: CHRONIC MYELOID LEUKAEMIA
     Dosage: 400 MG, 1X/DAY
     Route: 048
     Dates: start: 201812, end: 20190107
  3. BOSULIF [Suspect]
     Active Substance: BOSUTINIB MONOHYDRATE
     Dosage: 200 MG

REACTIONS (12)
  - Asthenia [Unknown]
  - Headache [Unknown]
  - Nausea [Recovering/Resolving]
  - Dysphonia [Unknown]
  - Platelet count increased [Unknown]
  - Product use issue [Unknown]
  - Abdominal pain upper [Unknown]
  - Dizziness [Unknown]
  - Decreased appetite [Unknown]
  - Off label use [Unknown]
  - Malaise [Recovering/Resolving]
  - Drug hypersensitivity [Unknown]

NARRATIVE: CASE EVENT DATE: 201812
